FAERS Safety Report 10189465 (Version 2)
Quarter: 2014Q2

REPORT INFORMATION
  Report Type: Spontaneous
  Country: CN (occurrence: CN)
  Receive Date: 20140522
  Receipt Date: 20140527
  Transmission Date: 20141212
  Serious: Yes (Death, Life-Threatening)
  Sender: FDA-Public Use
  Company Number: CN-BAYER-2014-073949

PATIENT
  Age: 68 Year
  Sex: Male
  Weight: 70 kg

DRUGS (1)
  1. ULTRAVIST [Suspect]
     Indication: COMPUTERISED TOMOGRAM
     Dosage: 125 ML, ONCE
     Route: 042
     Dates: start: 20140516, end: 20140516

REACTIONS (10)
  - Myocardial infarction [Fatal]
  - Dyspnoea [None]
  - Loss of consciousness [Not Recovered/Not Resolved]
  - Cardiac arrest [None]
  - Respiratory arrest [Recovered/Resolved]
  - Faecal incontinence [None]
  - Urinary incontinence [None]
  - Blood pressure decreased [None]
  - Cyanosis [Recovered/Resolved]
  - Heart rate decreased [None]
